FAERS Safety Report 11164673 (Version 1)
Quarter: 2015Q2

REPORT INFORMATION
  Report Type: Spontaneous
  Country: US (occurrence: None)
  Receive Date: 20150603
  Receipt Date: 20150603
  Transmission Date: 20150821
  Serious: Yes (Death)
  Sender: FDA-Public Use
  Company Number: None

PATIENT
  Age: 76 Year
  Sex: Female

DRUGS (7)
  1. SILDENAFIL. [Concomitant]
     Active Substance: SILDENAFIL
  2. METOPROLOL [Concomitant]
     Active Substance: METOPROLOL
  3. PANTOPRAZOLE [Concomitant]
     Active Substance: PANTOPRAZOLE SODIUM
  4. TIOTROPIUM [Concomitant]
     Active Substance: TIOTROPIUM
  5. PAROXETINE [Concomitant]
     Active Substance: PAROXETINE\PAROXETINE HYDROCHLORIDE
  6. BUDESONIDE. [Concomitant]
     Active Substance: BUDESONIDE
  7. TRACLEER [Suspect]
     Active Substance: BOSENTAN\BOSENTAN MONOHYDRATE
     Indication: PULMONARY ARTERIAL HYPERTENSION
     Route: 048
     Dates: start: 201412, end: 201505

REACTIONS (4)
  - Pulmonary oedema [None]
  - Liver function test abnormal [None]
  - Foot fracture [None]
  - Enterococcus test positive [None]

NARRATIVE: CASE EVENT DATE: 20150525
